FAERS Safety Report 14230240 (Version 2)
Quarter: 2017Q4

REPORT INFORMATION
  Report Type: Spontaneous
  Country: US (occurrence: US)
  Receive Date: 20171128
  Receipt Date: 20171205
  Transmission Date: 20180321
  Serious: Yes (Other)
  Sender: FDA-Public Use
  Company Number: US-AUROBINDO-AUR-APL-2017-43819

PATIENT
  Sex: Male

DRUGS (1)
  1. DIVALPROEX SODIUM DELAYED-RELEASE [Suspect]
     Active Substance: DIVALPROEX SODIUM
     Indication: SEIZURE
     Route: 065

REACTIONS (4)
  - Drug ineffective [Unknown]
  - Product coating issue [Unknown]
  - Seizure [Unknown]
  - Wrong technique in product usage process [Unknown]
